FAERS Safety Report 8537632-5 (Version None)
Quarter: 2012Q3

REPORT INFORMATION
  Report Type: 
  Country: None (occurrence: None)
  Receive Date: 20120725
  Receipt Date: 20120718
  Transmission Date: 20120928
  Serious: Yes (Other)
  Sender: FDA-Public Use
  Company Number: JP-VERTEX PHARMACEUTICALS INC.-AE-2012-010801

PATIENT
  Age: 67 Year
  Sex: Female

DRUGS (7)
  1. PEGINTERFERON ALFA-2B [Concomitant]
     Route: 058
     Dates: start: 20120628
  2. AMOBAN [Concomitant]
     Route: 048
  3. RIBAVIRIN [Concomitant]
     Indication: HEPATITIS C
     Route: 048
     Dates: start: 20120524, end: 20120627
  4. PEGINTERFERON ALFA-2B [Concomitant]
     Indication: HEPATITIS C
     Route: 058
     Dates: start: 20120524, end: 20120621
  5. TELAVIC (TELAPREVIR) [Suspect]
     Route: 048
     Dates: start: 20120621
  6. TELAVIC (TELAPREVIR) [Suspect]
     Indication: HEPATITIS C
     Route: 048
     Dates: start: 20120524, end: 20120620
  7. RIBAVIRIN [Concomitant]
     Route: 048
     Dates: start: 20120628

REACTIONS (3)
  - DECREASED APPETITE [None]
  - VOMITING [None]
  - NAUSEA [None]
